FAERS Safety Report 21977787 (Version 1)
Quarter: 2023Q1

REPORT INFORMATION
  Report Type: Spontaneous
  Country: CA (occurrence: CA)
  Receive Date: 20230210
  Receipt Date: 20230210
  Transmission Date: 20230418
  Serious: Yes (Other)
  Sender: FDA-Public Use
  Company Number: CA-BAYER-2023A013265

PATIENT
  Age: 43 Year
  Sex: Female
  Weight: 81 kg

DRUGS (1)
  1. MIRENA [Suspect]
     Active Substance: LEVONORGESTREL
     Dosage: 20?G/DAY
     Route: 015

REACTIONS (10)
  - Neurogenic shock [None]
  - Myalgia [None]
  - Tachycardia [None]
  - Loss of libido [None]
  - Vulvovaginal dryness [None]
  - Depression [None]
  - Night sweats [None]
  - Anxiety [None]
  - Weight increased [None]
  - Aggression [None]
